FAERS Safety Report 4628511-4 (Version None)
Quarter: 2005Q2

REPORT INFORMATION
  Report Type: 
  Country: None (occurrence: None)
  Receive Date: 20050404
  Receipt Date: 20050329
  Transmission Date: 20051028
  Serious: Yes (Hospitalization)
  Sender: FDA-Public Use
  Company Number: 805#1#2005-00016

PATIENT
  Age: 80 Year
  Sex: Male

DRUGS (4)
  1. ALPROSTADIL [Suspect]
     Indication: LUMBAR SPINAL STENOSIS
     Dosage: 1.120 MCG (60MCG 2 IN 1 DAYS(S)) INTRAVENOUS DRIP
     Route: 041
     Dates: start: 20050204, end: 20050208
  2. BENZBROMARONE [Concomitant]
  3. CHIMAPHILA-UMBELLATA-EXT./POPULUS-TREMULA-EXT/PULSATILLA-PRATENSIS MIL [Concomitant]
  4. EXTRACT-FROM-INFLAMM.-RABBIT-SKIN-INOCULATED-BY-VACCINIA-VIRUS (ORGAN [Concomitant]

REACTIONS (4)
  - CARDIAC FAILURE [None]
  - PALPITATIONS [None]
  - PERICARDIAL EFFUSION [None]
  - PLEURAL EFFUSION [None]
